FAERS Safety Report 21296542 (Version 1)
Quarter: 2022Q3

REPORT INFORMATION
  Report Type: Spontaneous
  Country: US (occurrence: US)
  Receive Date: 20220906
  Receipt Date: 20220906
  Transmission Date: 20221026
  Serious: No
  Sender: FDA-Public Use
  Company Number: US-AUROBINDO-AUR-APL-2021-051888

PATIENT
  Sex: Female

DRUGS (3)
  1. AMLODIPINE [Suspect]
     Active Substance: AMLODIPINE BESYLATE
     Indication: Blood pressure measurement
     Dosage: UNK
     Route: 065
  2. LOSARTAN [Suspect]
     Active Substance: LOSARTAN
     Indication: Blood pressure measurement
     Dosage: UNK
     Route: 065
  3. LENVIMA [Suspect]
     Active Substance: LENVATINIB
     Indication: Hepatic cancer
     Dosage: 12 MILLIGRAM
     Route: 048
     Dates: start: 20210810

REACTIONS (9)
  - Headache [Recovered/Resolved]
  - Epistaxis [Unknown]
  - Insomnia [Unknown]
  - Paraesthesia [Unknown]
  - Taste disorder [Unknown]
  - Dry skin [Unknown]
  - Weight decreased [Unknown]
  - Alopecia [Unknown]
  - Drug ineffective [Unknown]
